FAERS Safety Report 6987247-5 (Version None)
Quarter: 2010Q3

REPORT INFORMATION
  Report Type: 
  Country: None (occurrence: None)
  Receive Date: 20100827
  Receipt Date: 20100222
  Transmission Date: 20110219
  Serious: Yes (Hospitalization)
  Sender: FDA-Public Use
  Company Number: AMAG201000128

PATIENT
  Age: 79 Year
  Sex: Male

DRUGS (1)
  1. FERAHEME [Suspect]
     Indication: RENAL FAILURE CHRONIC
     Dosage: 510 MG, SINGLE, INTRAVENOUS
     Route: 042
     Dates: start: 20100128, end: 20100128

REACTIONS (4)
  - ABDOMINAL PAIN [None]
  - DYSURIA [None]
  - HEPATIC ENZYME INCREASED [None]
  - NAUSEA [None]
